FAERS Safety Report 6149614-1 (Version None)
Quarter: 2009Q2

REPORT INFORMATION
  Report Type: 
  Country: None (occurrence: None)
  Receive Date: 20090409
  Receipt Date: 20090403
  Transmission Date: 20091009
  Serious: Yes (Other)
  Sender: FDA-Public Use
  Company Number: IT-NOVOPROD-285905

PATIENT
  Age: 63 Year
  Sex: Male

DRUGS (6)
  1. ACTRAPID NOVOLET [Suspect]
     Indication: DIABETES MELLITUS
     Dosage: 7+10+8
  2. ACTRAPID NOVOLET [Suspect]
     Dosage: 3+7+7
  3. ENALAPRIL [Concomitant]
     Dosage: 20 MG, UNK
  4. CARVEDILOLO [Concomitant]
     Dosage: 50 MG, UNK
  5. ASPIRIN [Concomitant]
     Dosage: 100 MG, UNK
  6. ROSUVASTATINE [Concomitant]
     Dosage: 10 MG, QD

REACTIONS (4)
  - CARDIAC IMAGING PROCEDURE ABNORMAL [None]
  - DYSPNOEA [None]
  - OEDEMA PERIPHERAL [None]
  - PLEURAL EFFUSION [None]
